FAERS Safety Report 10384658 (Version 4)
Quarter: 2014Q4

REPORT INFORMATION
  Report Type: Report from Study
  Country: CA (occurrence: CA)
  Receive Date: 20140814
  Receipt Date: 20141011
  Transmission Date: 20150528
  Serious: Yes (Hospitalization, Other)
  Sender: FDA-Public Use
  Company Number: CA-ABBVIE-14P-028-1218974-00

PATIENT
  Age: 68 Year
  Sex: Male
  Weight: 92.16 kg

DRUGS (2)
  1. HUMIRA [Suspect]
     Active Substance: ADALIMUMAB
     Route: 058
     Dates: start: 20140411
  2. HUMIRA [Suspect]
     Active Substance: ADALIMUMAB
     Indication: CROHN^S DISEASE
     Route: 058
     Dates: start: 20120614, end: 20140321

REACTIONS (23)
  - Asthenia [Not Recovered/Not Resolved]
  - Pain in extremity [Unknown]
  - Fall [Unknown]
  - Lower limb fracture [Recovered/Resolved]
  - Hypotension [Recovered/Resolved]
  - Dizziness [Not Recovered/Not Resolved]
  - Arthralgia [Not Recovered/Not Resolved]
  - Hypersomnia [Unknown]
  - Weight decreased [Unknown]
  - Medical device pain [Not Recovered/Not Resolved]
  - Diarrhoea [Recovering/Resolving]
  - Weight fluctuation [Not Recovered/Not Resolved]
  - Abdominal distension [Not Recovered/Not Resolved]
  - Musculoskeletal pain [Unknown]
  - Feeling hot [Not Recovered/Not Resolved]
  - Hypoaesthesia [Not Recovered/Not Resolved]
  - Ankle fracture [Recovered/Resolved]
  - Unevaluable event [Recovering/Resolving]
  - Psoriasis [Not Recovered/Not Resolved]
  - Rotator cuff syndrome [Not Recovered/Not Resolved]
  - Fatigue [Unknown]
  - Crohn^s disease [Not Recovered/Not Resolved]
  - Arthralgia [Unknown]

NARRATIVE: CASE EVENT DATE: 2014
